FAERS Safety Report 8583418-5 (Version None)
Quarter: 2012Q3

REPORT INFORMATION
  Report Type: 
  Country: None (occurrence: None)
  Receive Date: 20120809
  Receipt Date: 20120803
  Transmission Date: 20120928
  Serious: Yes (Other)
  Sender: FDA-Public Use
  Company Number: CHPA2012US017184

PATIENT
  Age: 80 Year
  Sex: Female

DRUGS (1)
  1. VOLTAREN [Suspect]
     Indication: ERYTHEMA
     Dosage: A DAB ON NOSE, USUALLY AT NIGHT
     Route: 061
     Dates: start: 20110801

REACTIONS (7)
  - SKIN DISCOLOURATION [None]
  - PAIN [None]
  - THERAPEUTIC RESPONSE UNEXPECTED [None]
  - WRONG TECHNIQUE IN DRUG USAGE PROCESS [None]
  - DRUG INEFFECTIVE FOR UNAPPROVED INDICATION [None]
  - DRUG ADMINISTERED AT INAPPROPRIATE SITE [None]
  - NEOPLASM MALIGNANT [None]
